FAERS Safety Report 5642464-1 (Version None)
Quarter: 2008Q1

REPORT INFORMATION
  Report Type: 
  Country: None (occurrence: None)
  Receive Date: 20080228
  Receipt Date: 20080222
  Transmission Date: 20080703
  Serious: Yes (Other)
  Sender: FDA-Public Use
  Company Number: BR-JNJFOC-20080205182

PATIENT
  Age: 15 Year
  Sex: Female
  Weight: 80 kg

DRUGS (1)
  1. MICRONOR [Suspect]
     Indication: CONTRACEPTION

REACTIONS (1)
  - WEIGHT INCREASED [None]
